FAERS Safety Report 8619792 (Version 3)
Quarter: 2012Q4

REPORT INFORMATION
  Report Type: 
  Country: US (occurrence: US)
  Receive Date: 20120618
  Receipt Date: 20120924
  Transmission Date: 20130627
  Serious: Yes (Death, Life-Threatening, Hospitalization)
  Sender: FDA-Public Use
  Company Number: US-BRISTOL-MYERS SQUIBB COMPANY-16677775

PATIENT
  Age: 74 Year
  Sex: Male

DRUGS (6)
  1. SPRYCEL (PH+ALL) TABS [Suspect]
     Indication: ACUTE LYMPHOCYTIC LEUKAEMIA
     Dates: start: 20120522
  2. DAUNORUBICIN [Suspect]
     Indication: ACUTE LYMPHOCYTIC LEUKAEMIA
     Dosage: on days 1,8,15,22
  3. VINCRISTINE [Suspect]
     Indication: ACUTE LYMPHOCYTIC LEUKAEMIA
     Dosage: On days 1,8,15,22
  4. METHOTREXATE [Suspect]
     Indication: ACUTE LYMPHOCYTIC LEUKAEMIA
     Dosage: Day15
     Route: 037
  5. PREDNISONE [Suspect]
     Indication: ACUTE LYMPHOCYTIC LEUKAEMIA
  6. L-ASPARAGINASE [Suspect]

REACTIONS (8)
  - Hepatic failure [Fatal]
  - Renal failure [Fatal]
  - Malignant neoplasm progression [Fatal]
  - Pneumonia [Unknown]
  - Enterococcal sepsis [Unknown]
  - Cardiac failure congestive [Unknown]
  - Fluid retention [Unknown]
  - Atrial fibrillation [Unknown]
